FAERS Safety Report 15659405 (Version 1)
Quarter: 2018Q4

REPORT INFORMATION
  Report Type: Spontaneous
  Country: US (occurrence: US)
  Receive Date: 20181127
  Receipt Date: 20181127
  Transmission Date: 20190205
  Serious: Yes (Other)
  Sender: FDA-Public Use
  Company Number: US-ROCHE-2219401

PATIENT
  Age: 69 Year
  Sex: Male
  Weight: 98.97 kg

DRUGS (9)
  1. CLONIDINE. [Concomitant]
     Active Substance: CLONIDINE
     Indication: HYPERTENSION
     Dosage: 0.1MG
     Route: 065
  2. GABAPENTIN. [Suspect]
     Active Substance: GABAPENTIN
     Indication: NEUROPATHY PERIPHERAL
     Route: 065
     Dates: end: 201811
  3. LOSARTAN. [Concomitant]
     Active Substance: LOSARTAN
     Indication: HYPERTENSION
     Route: 065
  4. KLONOPIN [Suspect]
     Active Substance: CLONAZEPAM
     Dosage: 1 TO 2 TIMES A WEEK PRN; ONGOING: YES
     Route: 065
  5. KLONOPIN [Suspect]
     Active Substance: CLONAZEPAM
     Indication: ANXIETY
     Dosage: 0.5MG ; ONGOING: NO
     Route: 065
     Dates: start: 2016
  6. KLONOPIN [Suspect]
     Active Substance: CLONAZEPAM
     Indication: NERVOUSNESS
     Dosage: ONGOING: NO
     Route: 065
  7. CYCLOBENZAPRINE. [Suspect]
     Active Substance: CYCLOBENZAPRINE
     Indication: NERVE COMPRESSION
     Route: 065
     Dates: end: 2018
  8. HYDROCHLOROTHIAZIDE. [Concomitant]
     Active Substance: HYDROCHLOROTHIAZIDE
     Indication: HYPERTENSION
     Dosage: 12.5MG
     Route: 065
  9. PRAVASTATIN. [Concomitant]
     Active Substance: PRAVASTATIN
     Indication: BLOOD CHOLESTEROL
     Route: 065

REACTIONS (8)
  - Neuropathy peripheral [Not Recovered/Not Resolved]
  - Dizziness [Not Recovered/Not Resolved]
  - Wrong technique in product usage process [Unknown]
  - Epilepsy [Not Recovered/Not Resolved]
  - Drug ineffective [Unknown]
  - Nerve compression [Not Recovered/Not Resolved]
  - Sedation [Not Recovered/Not Resolved]
  - Overweight [Unknown]

NARRATIVE: CASE EVENT DATE: 201805
